FAERS Safety Report 6942939-9 (Version None)
Quarter: 2010Q3

REPORT INFORMATION
  Report Type: 
  Country: None (occurrence: None)
  Receive Date: 20100825
  Receipt Date: 20100825
  Transmission Date: 20110219
  Serious: No
  Sender: FDA-Public Use
  Company Number: None

PATIENT
  Sex: Female
  Weight: 6 kg

DRUGS (15)
  1. VORICONAZOLE [Suspect]
     Indication: INTESTINAL MASS
     Dosage: 40MG Q12H IV
     Route: 042
     Dates: start: 20100706, end: 20100719
  2. VORICONAZOLE [Suspect]
     Indication: LUNG INFECTION
     Dosage: 40MG Q12H IV
     Route: 042
     Dates: start: 20100706, end: 20100719
  3. VORICONAZOLE [Suspect]
     Dosage: 25MG Q12H PO
     Route: 048
     Dates: start: 20100719, end: 20100802
  4. VORICONAZOLE [Suspect]
     Dosage: 30MG Q12H PO
     Route: 048
     Dates: start: 20100802, end: 20100803
  5. CIPRO [Concomitant]
  6. CLINDAMYCIN [Concomitant]
  7. METRONIDAZOLE [Concomitant]
  8. SEPTRA [Concomitant]
  9. CEFEPIME [Concomitant]
  10. MEROPENEM [Concomitant]
  11. LINEZOLID [Concomitant]
  12. AUGMENTIN '125' [Concomitant]
  13. MICAFUNGIN [Concomitant]
  14. INTERFERON GAMMA [Concomitant]
  15. RANITIDINE [Concomitant]

REACTIONS (1)
  - ELECTROCARDIOGRAM QT PROLONGED [None]
